FAERS Safety Report 9374568 (Version 1)
Quarter: 2013Q2

REPORT INFORMATION
  Report Type: Spontaneous
  Country: FR (occurrence: None)
  Receive Date: 20130624
  Receipt Date: 20130624
  Transmission Date: 20140414
  Serious: Yes (Hospitalization)
  Sender: FDA-Public Use
  Company Number: 1764542

PATIENT
  Age: 37 Year
  Sex: Female

DRUGS (2)
  1. CARBOPLATIN [Suspect]
     Indication: GLIOMA
     Route: 042
     Dates: start: 20120222, end: 20120222
  2. KEPPRA [Concomitant]

REACTIONS (3)
  - Agranulocytosis [None]
  - Pseudomonas infection [None]
  - Pancytopenia [None]
